FAERS Safety Report 19651671 (Version 2)
Quarter: 2022Q1

REPORT INFORMATION
  Report Type: Other
  Country: US (occurrence: US)
  Receive Date: 20210803
  Receipt Date: 20220223
  Transmission Date: 20220424
  Serious: Yes (Other)
  Sender: FDA-Public Use
  Company Number: US-COVIS PHARMA GMBH-2021COV23116

PATIENT
  Age: 35 Year
  Sex: Female
  Weight: 73.094 kg

DRUGS (1)
  1. MAKENA [Suspect]
     Active Substance: HYDROXYPROGESTERONE CAPROATE
     Indication: Premature delivery
     Route: 058
     Dates: start: 20210329, end: 20210621

REACTIONS (3)
  - Premature delivery [Recovered/Resolved]
  - Off label use [Unknown]
  - Incorrect dose administered [Unknown]

NARRATIVE: CASE EVENT DATE: 20210329
